FAERS Safety Report 5941767-0 (Version None)
Quarter: 2008Q4

REPORT INFORMATION
  Report Type: 
  Country: None (occurrence: None)
  Receive Date: 20081105
  Receipt Date: 20081103
  Transmission Date: 20090506
  Serious: Yes (Hospitalization, Other)
  Sender: FDA-Public Use
  Company Number: US-BRISTOL-MYERS SQUIBB COMPANY-14393706

PATIENT
  Age: 71 Year
  Sex: Male

DRUGS (11)
  1. COUMADIN [Suspect]
     Dosage: 1 DOSAGEFORM = 5MG/D AND 7.5 MG EVERY THURSDAY
  2. PLAVIX [Concomitant]
  3. LOVENOX [Concomitant]
  4. METOPROLOL TARTRATE [Concomitant]
  5. NIACIN [Concomitant]
  6. PROPOXYPHENE [Concomitant]
     Dosage: 65 MG TID PRN
  7. VIOXX [Concomitant]
  8. ULTRAM [Concomitant]
  9. CANDESARTAN CILEXETIL + HCTZ [Concomitant]
     Dosage: 1 DOSAGEFORM = 16/12.5 MG
  10. XALATAN [Concomitant]
     Dosage: XALATAN EYEDROPS
     Route: 047
  11. VITAMIN TAB [Concomitant]

REACTIONS (5)
  - CONTUSION [None]
  - DYSPNOEA EXERTIONAL [None]
  - PAIN [None]
  - SWELLING [None]
  - THROMBOSIS [None]
